FAERS Safety Report 15860749 (Version 2)
Quarter: 2024Q1

REPORT INFORMATION
  Report Type: Spontaneous
  Country: IT (occurrence: IT)
  Receive Date: 20190124
  Receipt Date: 20240311
  Transmission Date: 20240410
  Serious: Yes (Other)
  Sender: FDA-Public Use
  Company Number: IT-EMA-DD-20190108-KUMARVN_P-114626

PATIENT
  Age: 6 Year
  Sex: Male

DRUGS (8)
  1. CYCLOPHOSPHAMIDE [Suspect]
     Active Substance: CYCLOPHOSPHAMIDE
     Dosage: PRN
     Route: 065
  2. METHOTREXATE [Suspect]
     Active Substance: METHOTREXATE
     Dosage: PRN
     Route: 037
  3. METHOTREXATE [Suspect]
     Active Substance: METHOTREXATE
     Dosage: TOTAL: 24 DOSES
     Route: 037
  4. CYCLOSPORINE [Suspect]
     Active Substance: CYCLOSPORINE
     Indication: Stem cell transplant
     Dosage: 1 MG/KG/DAY, PRN
     Route: 042
  5. CYCLOSPORINE [Suspect]
     Active Substance: CYCLOSPORINE
     Dosage: 1 MG/KG, QD, REINTRODUCED AT 10% OF THE PREVIOUS DOSE WITH SUBSEQUENT INCREASES UNTIL THERAPEUTIC LE
     Route: 042
  6. VINCRISTINE SULFATE [Suspect]
     Active Substance: VINCRISTINE SULFATE
     Dosage: PRN
     Route: 065
  7. CYTARABINE [Suspect]
     Active Substance: CYTARABINE
     Dosage: PRN
     Route: 037
  8. CYTARABINE [Suspect]
     Active Substance: CYTARABINE
     Dosage: TOTAL: 24 DOSES
     Route: 037

REACTIONS (12)
  - Drug level increased [Recovered/Resolved]
  - Transplant rejection [Unknown]
  - Demyelination [Unknown]
  - Graft versus host disease [Recovered/Resolved]
  - Cerebrosclerosis [Not Recovered/Not Resolved]
  - Visual impairment [Unknown]
  - Seizure [Unknown]
  - Focal dyscognitive seizures [Not Recovered/Not Resolved]
  - Seizure [Recovered/Resolved]
  - Blood pressure increased [Unknown]
  - Toxic encephalopathy [Recovered/Resolved]
  - Hypertension [Unknown]
